FAERS Safety Report 10329868 (Version 2)
Quarter: 2014Q3

REPORT INFORMATION
  Report Type: Spontaneous
  Country: US (occurrence: US)
  Receive Date: 20140721
  Receipt Date: 20140721
  Transmission Date: 20150326
  Serious: Yes (Death, Hospitalization)
  Sender: FDA-Public Use
  Company Number: US-GLAXOSMITHKLINE-A0897698A

PATIENT
  Age: 59 Year
  Sex: Male
  Weight: 177.3 kg

DRUGS (1)
  1. AVANDIA [Suspect]
     Active Substance: ROSIGLITAZONE MALEATE
     Indication: DIABETES MELLITUS
     Route: 048
     Dates: start: 200006, end: 200705

REACTIONS (3)
  - Cardiac failure congestive [Unknown]
  - Cardio-respiratory arrest [Unknown]
  - Arrhythmia [Fatal]

NARRATIVE: CASE EVENT DATE: 200803
